FAERS Safety Report 15554312 (Version 3)
Quarter: 2019Q2

REPORT INFORMATION
  Report Type: Spontaneous
  Country: US (occurrence: US)
  Receive Date: 20181026
  Receipt Date: 20190528
  Transmission Date: 20190711
  Serious: No
  Sender: FDA-Public Use
  Company Number: US-PFIZER INC-2018430840

PATIENT
  Age: 26 Year
  Sex: Female
  Weight: 136 kg

DRUGS (13)
  1. FAMOTIDINE. [Concomitant]
     Active Substance: FAMOTIDINE
     Dosage: 40 MG, 1X/DAY (2 TABS AM)
     Dates: start: 2004
  2. FOLIC ACID. [Concomitant]
     Active Substance: FOLIC ACID
     Dosage: UNK
     Dates: start: 2004
  3. DESMOPRESSIN [Concomitant]
     Active Substance: DESMOPRESSIN
     Dosage: 0.8 MG, 2X/DAY (4 TABS AM 4 TABS PM)
     Dates: start: 2004
  4. HYDROCORT [HYDROCORTISONE SODIUM SUCCINATE] [Concomitant]
     Dosage: 15 MG, DAILY (1 TAB AM 2 TABS PM)
     Dates: start: 2004
  5. MODAFINIL. [Concomitant]
     Active Substance: MODAFINIL
     Dosage: 200 MG, 1X/DAY (2 TAB AM)
     Dates: start: 2004
  6. NORDITROPIN [Concomitant]
     Active Substance: SOMATROPIN
     Dosage: 0.8 MG, DAILY
     Dates: start: 2004
  7. GENOTROPIN MQ [Suspect]
     Active Substance: SOMATROPIN
     Indication: GROWTH HORMONE DEFICIENCY
     Dosage: UNK (2 SHOTS 0.8 INJECTIONS ON STOMACH)
     Dates: start: 201810, end: 201810
  8. HYDROCORTISONE. [Concomitant]
     Active Substance: HYDROCORTISONE
     Dosage: UNK
     Dates: start: 2004
  9. METFORMIN [Concomitant]
     Active Substance: METFORMIN HYDROCHLORIDE
     Dosage: 2000 MG, 1X/DAY (4 TABS PM)
     Dates: start: 2004
  10. GENOTROPIN MQ [Suspect]
     Active Substance: SOMATROPIN
     Dosage: UNK, 1X/DAY
     Dates: start: 201810, end: 201811
  11. LEVOTHYROXIN [Concomitant]
     Active Substance: LEVOTHYROXINE
     Dosage: 1.37 UG, 1X/DAY (1 TAB AM)
     Dates: start: 2004
  12. SOLU-CORTEF [Concomitant]
     Active Substance: HYDROCORTISONE SODIUM SUCCINATE
     Dosage: 100 MG, UNK
     Dates: start: 2004
  13. ZOFRAN [Concomitant]
     Active Substance: ONDANSETRON HYDROCHLORIDE
     Dosage: UNK
     Dates: start: 2004

REACTIONS (1)
  - Urticaria [Not Recovered/Not Resolved]

NARRATIVE: CASE EVENT DATE: 201810
